FAERS Safety Report 9096079 (Version 2)
Quarter: 2013Q1

REPORT INFORMATION
  Report Type: Report from Study
  Country: ES (occurrence: ES)
  Receive Date: 20130207
  Receipt Date: 20130313
  Transmission Date: 20140127
  Serious: Yes (Death, Hospitalization)
  Sender: FDA-Public Use
  Company Number: ES-ROCHE-787788

PATIENT
  Age: 36 Year
  Sex: Female
  Weight: 45 kg

DRUGS (7)
  1. VEMURAFENIB [Suspect]
     Indication: METASTATIC MALIGNANT MELANOMA
     Dosage: LAST DOSE PRIOR TO SAE 04 JULY 2011, PERMANENTLY DISCONTINUED
     Route: 048
     Dates: start: 20110330, end: 20110704
  2. HEPARIN SODIUM [Suspect]
     Indication: THROMBOSIS PROPHYLAXIS
     Route: 065
     Dates: start: 201101, end: 20110705
  3. OXYCONTIN [Concomitant]
     Route: 065
  4. OMEPRAZOLE [Concomitant]
     Route: 065
  5. FUROSEMIDA [Concomitant]
     Indication: PROPHYLAXIS
     Route: 065
  6. ZOLPIDEM [Concomitant]
     Route: 065
  7. SIMVASTATINA [Concomitant]
     Route: 065

REACTIONS (1)
  - Cerebral haemorrhage [Fatal]
